FAERS Safety Report 5010017-4 (Version None)
Quarter: 2006Q2

REPORT INFORMATION
  Report Type: 
  Country: None (occurrence: None)
  Receive Date: 20060510
  Receipt Date: 20060426
  Transmission Date: 20061013
  Serious: No
  Sender: FDA-Public Use
  Company Number: 200610140

PATIENT
  Sex: Male

DRUGS (1)
  1. SANDOGLOBULIN [Suspect]
     Indication: GUILLAIN-BARRE SYNDROME
     Dosage: 36 G DAILY IV
     Route: 042

REACTIONS (1)
  - BLOOD PRESSURE INCREASED [None]
